FAERS Safety Report 10022462 (Version 3)
Quarter: 2014Q2

REPORT INFORMATION
  Report Type: Report from Study
  Country: US (occurrence: US)
  Receive Date: 20140319
  Receipt Date: 20140421
  Transmission Date: 20141212
  Serious: Yes (Hospitalization)
  Sender: FDA-Public Use
  Company Number: US-CELGENEUS-163-21660-14032747

PATIENT
  Age: 71 Year
  Sex: Male
  Weight: 75.6 kg

DRUGS (14)
  1. ABRAXANE [Suspect]
     Indication: BREAST CANCER
     Route: 065
     Dates: start: 20131017
  2. MPDL3280A [Suspect]
     Indication: BREAST CANCER
     Route: 041
     Dates: start: 20131017
  3. MPDL3280A [Suspect]
     Route: 041
     Dates: start: 20140227
  4. CARBOPLATIN [Suspect]
     Indication: BREAST CANCER
     Route: 065
     Dates: start: 20131017
  5. LEXAPRO [Concomitant]
     Indication: ANXIETY
     Route: 048
  6. LIPITOR [Concomitant]
     Indication: HYPERLIPIDAEMIA
     Route: 048
  7. PROCHLORPERAZINE MALEATE [Concomitant]
     Indication: VOMITING
     Route: 048
  8. TRAZODONE HCL [Concomitant]
     Indication: DEPRESSION
     Route: 048
  9. TYLENOL [Concomitant]
     Indication: PRODUCT USED FOR UNKNOWN INDICATION
     Route: 048
  10. XANAX [Concomitant]
     Indication: ANXIETY
     Route: 048
     Dates: start: 20131017
  11. ATIVAN [Concomitant]
     Indication: ANXIETY
     Route: 065
     Dates: start: 20131008
  12. ZOFRAN [Concomitant]
     Indication: NAUSEA
     Route: 048
     Dates: start: 20131018
  13. BIOTENE [Concomitant]
     Indication: DRY MOUTH
     Route: 048
     Dates: start: 20131212
  14. ABILIFY [Concomitant]
     Indication: DEPRESSION
     Route: 048
     Dates: start: 201403

REACTIONS (2)
  - Suicidal ideation [Recovered/Resolved]
  - Skin infection [Recovered/Resolved]
